FAERS Safety Report 4939248-6 (Version None)
Quarter: 2006Q1

REPORT INFORMATION
  Report Type: 
  Country: None (occurrence: None)
  Receive Date: 20060306
  Receipt Date: 20060221
  Transmission Date: 20060701
  Serious: Yes (Hospitalization)
  Sender: FDA-Public Use
  Company Number: FR200602004416

PATIENT
  Age: 74 Year
  Sex: Female

DRUGS (1)
  1. ALIMTA [Suspect]
     Indication: NON-SMALL CELL LUNG CANCER
     Dosage: 500 MG/M2, OTHER, INTRAVESICAL
     Route: 043
     Dates: start: 20060101, end: 20060101

REACTIONS (6)
  - BLOOD CREATININE INCREASED [None]
  - DERMATITIS ALLERGIC [None]
  - FATIGUE [None]
  - GENERAL PHYSICAL HEALTH DETERIORATION [None]
  - INFECTION [None]
  - THROMBOCYTOPENIC PURPURA [None]
